FAERS Safety Report 9426463 (Version 1)
Quarter: 2013Q3

REPORT INFORMATION
  Report Type: Spontaneous
  Country: US (occurrence: US)
  Receive Date: 20130730
  Receipt Date: 20130730
  Transmission Date: 20140515
  Serious: Yes (Death, Other)
  Sender: FDA-Public Use
  Company Number: US-JNJFOC-20130401637

PATIENT
  Age: 89 Year
  Sex: Male
  Weight: 86.64 kg

DRUGS (12)
  1. XARELTO [Suspect]
     Indication: CEREBROVASCULAR ACCIDENT PROPHYLAXIS
     Route: 048
     Dates: start: 20130403
  2. XARELTO [Suspect]
     Indication: CEREBROVASCULAR ACCIDENT PROPHYLAXIS
     Route: 048
     Dates: start: 20120620, end: 20130401
  3. XARELTO [Suspect]
     Indication: ATRIAL FIBRILLATION
     Route: 048
     Dates: start: 20130403
  4. XARELTO [Suspect]
     Indication: ATRIAL FIBRILLATION
     Route: 048
     Dates: start: 20120620, end: 20130401
  5. LOVASTATIN [Concomitant]
     Route: 048
  6. CYCLOBENZAPRINE HCL [Concomitant]
     Route: 048
  7. VITAMIN D [Concomitant]
     Dosage: CAPSULE 1000 UNITS
     Route: 048
  8. TAMSULOSIN HCL [Concomitant]
     Route: 048
  9. LOSARTAN POTASSIUM [Concomitant]
     Route: 048
  10. FUROSEMIDE [Concomitant]
     Route: 048
  11. DONEPEZIL HYDROCHLORIDE [Concomitant]
     Route: 048
  12. CARVEDILOL [Concomitant]
     Route: 048

REACTIONS (10)
  - Death [Fatal]
  - Epistaxis [Unknown]
  - Vertigo [Unknown]
  - Lip haemorrhage [Unknown]
  - Haemorrhage [Unknown]
  - International normalised ratio increased [Unknown]
  - Ecchymosis [Unknown]
  - Dyspnoea [Unknown]
  - Chest pain [Unknown]
  - Dizziness [Unknown]
